FAERS Safety Report 9293350 (Version 1)
Quarter: 2013Q2

REPORT INFORMATION
  Report Type: Spontaneous
  Country: US (occurrence: US)
  Receive Date: 20130516
  Receipt Date: 20130516
  Transmission Date: 20140414
  Serious: No
  Sender: FDA-Public Use
  Company Number: US-TARO-2012P1049424

PATIENT
  Age: 77 Year
  Sex: Female
  Weight: 70.31 kg

DRUGS (2)
  1. CARBAMAZEPINE EXTENDED RELEASE TABLETS USP 400MG [Suspect]
     Indication: NEURALGIA
     Route: 048
     Dates: start: 2010
  2. CARBIDOPA/LEVODOPA [Concomitant]
     Dates: start: 2008

REACTIONS (1)
  - Drug ineffective [Not Recovered/Not Resolved]
